FAERS Safety Report 12606144 (Version 11)
Quarter: 2017Q1

REPORT INFORMATION
  Report Type: Spontaneous
  Country: US (occurrence: US)
  Receive Date: 20160729
  Receipt Date: 20170302
  Transmission Date: 20170428
  Serious: Yes (Hospitalization)
  Sender: FDA-Public Use
  Company Number: US-PFIZER INC-2016359405

PATIENT
  Age: 65 Year
  Sex: Female
  Weight: 84 kg

DRUGS (5)
  1. IBRANCE [Suspect]
     Active Substance: PALBOCICLIB
     Dosage: 75 MG, CYCLIC (1 CAPSULE DAILY FOR 21 DAYS) (DAILY)(1CAPSULE/DAILY 1-21/DAYS)
     Route: 048
     Dates: start: 20160610
  2. IBRANCE [Suspect]
     Active Substance: PALBOCICLIB
     Indication: BREAST CANCER METASTATIC
     Dosage: 100 MG, CYCLIC (FOR 21 DAYS)
     Route: 048
     Dates: start: 20160610
  3. IBRANCE [Suspect]
     Active Substance: PALBOCICLIB
     Dosage: 125 MG, (DAY 1-21 Q 28 DAYS)
     Route: 048
     Dates: start: 20160611
  4. IBRANCE [Suspect]
     Active Substance: PALBOCICLIB
     Dosage: 100 MG, CYCLIC (DAYS 1-21 Q28 D)
     Route: 048
     Dates: start: 20160621
  5. IBRANCE [Suspect]
     Active Substance: PALBOCICLIB
     Dosage: 125 MG, CYCLIC (QD D1-21Q28)
     Route: 048
     Dates: start: 20160611

REACTIONS (15)
  - Pneumonia [Unknown]
  - Weight decreased [Unknown]
  - Drug dose omission [Unknown]
  - Haemoglobin decreased [Unknown]
  - Fatigue [Not Recovered/Not Resolved]
  - Nasopharyngitis [Unknown]
  - Asthenia [Unknown]
  - Influenza [Unknown]
  - Dyspnoea [Unknown]
  - Saliva altered [Unknown]
  - Blood count abnormal [Unknown]
  - Decreased appetite [Unknown]
  - Alopecia [Unknown]
  - Blood creatine increased [Unknown]
  - Influenza like illness [Unknown]
